FAERS Safety Report 6494448-1 (Version None)
Quarter: 2009Q4

REPORT INFORMATION
  Report Type: 
  Country: None (occurrence: None)
  Receive Date: 20091214
  Receipt Date: 20090219
  Transmission Date: 20100525
  Serious: No
  Sender: FDA-Public Use
  Company Number: US-BRISTOL-MYERS SQUIBB COMPANY-14513303

PATIENT
  Age: 10 Year
  Sex: Female

DRUGS (2)
  1. ABILIFY [Suspect]
     Indication: AFFECTIVE DISORDER
     Dosage: STARTED 2 MG 6-8 MONTHS AGO AND DISCONTINUED; RESTARTED 2 WEEKS AGO AND DISCONTINUED 2 DAYS AGO.
     Dates: start: 20080101
  2. LOVAZA [Concomitant]

REACTIONS (4)
  - ERYTHEMA [None]
  - SWELLING FACE [None]
  - VISUAL IMPAIRMENT [None]
  - WEIGHT INCREASED [None]
